FAERS Safety Report 18052066 (Version 2)
Quarter: 2020Q3

REPORT INFORMATION
  Report Type: Spontaneous
  Country: FR (occurrence: FR)
  Receive Date: 20200721
  Receipt Date: 20200724
  Transmission Date: 20201103
  Serious: Yes (Hospitalization)
  Sender: FDA-Public Use
  Company Number: FR-009507513-2007FRA004863

PATIENT
  Age: 82 Year
  Sex: Male

DRUGS (6)
  1. RIFATER [Suspect]
     Active Substance: ISONIAZID\PYRAZINAMIDE\RIFAMPIN
     Indication: LYMPH NODE TUBERCULOSIS
     Dosage: 1500 MILLIGRAM, QD
     Route: 048
     Dates: start: 20200422, end: 20200618
  2. SERESTA [Concomitant]
     Active Substance: OXAZEPAM
     Indication: ANXIETY
     Dosage: 10 MILLIGRAM
     Route: 048
  3. LOXEN [Concomitant]
     Indication: HYPERTENSION
     Dosage: 100 MILLIGRAM, QD, EXTENDED RELEASE CAPSULE
     Route: 048
  4. NORSET [Suspect]
     Active Substance: MIRTAZAPINE
     Indication: DEPRESSION
     Dosage: 15 MILLIGRAM, QD
     Route: 048
     Dates: start: 20200616, end: 20200618
  5. BECILAN [Concomitant]
     Active Substance: PYRIDOXINE
     Indication: VITAMIN SUPPLEMENTATION
     Dosage: 250 MILLIGRAM, QD
     Route: 048
  6. DEXAMBUTOL [Concomitant]
     Active Substance: ETHAMBUTOL HYDROCHLORIDE
     Indication: LYMPH NODE TUBERCULOSIS
     Dosage: 500 MILLIGRAM, QD
     Route: 048
     Dates: start: 20200422, end: 20200512

REACTIONS (2)
  - Hepatocellular injury [Recovering/Resolving]
  - Cholestasis [Recovering/Resolving]

NARRATIVE: CASE EVENT DATE: 20200618
